FAERS Safety Report 7493130-1 (Version None)
Quarter: 2011Q2

REPORT INFORMATION
  Report Type: 
  Country: None (occurrence: None)
  Receive Date: 20110519
  Receipt Date: 20110519
  Transmission Date: 20111010
  Serious: No
  Sender: FDA-Public Use
  Company Number: None

PATIENT
  Sex: Female

DRUGS (1)
  1. ENBREL [Suspect]
     Indication: PSORIATIC ARTHROPATHY
     Dosage: 60MG QW SQ
     Route: 058
     Dates: start: 20110419, end: 20110503

REACTIONS (3)
  - SKIN EXFOLIATION [None]
  - BLISTER [None]
  - INJECTION SITE URTICARIA [None]
